FAERS Safety Report 9350162 (Version 2)
Quarter: 2013Q3

REPORT INFORMATION
  Report Type: Spontaneous
  Country: US (occurrence: US)
  Receive Date: 20130617
  Receipt Date: 20130708
  Transmission Date: 20140515
  Serious: Yes (Other)
  Sender: FDA-Public Use
  Company Number: US-ROCHE-1235824

PATIENT
  Age: 41 Year
  Sex: Female
  Weight: 86.5 kg

DRUGS (16)
  1. XOLAIR [Suspect]
     Indication: ASTHMA
     Dosage: MOST RECENT DOSE ON 25/APR/2013
     Route: 065
  2. CAFFEINE [Concomitant]
  3. ASTELIN NASAL SPRAY [Concomitant]
     Dosage: 2 SPRAYS EACH NOSTRILS
     Route: 065
  4. FLONASE NASAL SPRAY [Concomitant]
     Dosage: 2 SPRAYS IN EACH NOSTRIL DAILY
     Route: 065
  5. QVAR [Concomitant]
     Dosage: 2 PUFF TWICE DAILY
     Route: 065
  6. SINGULAIR [Concomitant]
     Dosage: QD
     Route: 065
  7. SPIRIVA HANDIHALER [Concomitant]
     Dosage: DAILY AT BEDTIME
     Route: 065
  8. VENTOLIN HFA [Concomitant]
     Dosage: 2 INHALATIONS AS NEEDED
     Route: 065
  9. ABILIFY [Concomitant]
     Dosage: HALF TO 1 TABLET DAILY
     Route: 065
  10. ADDERALL XR [Concomitant]
     Route: 065
  11. AZITHROMYCIN [Concomitant]
     Route: 065
  12. IBUPROFEN [Concomitant]
     Route: 065
  13. MELATONIN [Concomitant]
  14. OMEPRAZOLE [Concomitant]
     Route: 065
  15. VITAMIN A [Concomitant]
  16. VITAMIN B COMPLEX [Concomitant]

REACTIONS (4)
  - Vaginal haemorrhage [Unknown]
  - Foetal growth restriction [Unknown]
  - Abortion spontaneous [Unknown]
  - Exposure during pregnancy [Unknown]
